FAERS Safety Report 11723956 (Version 1)
Quarter: 2015Q4

REPORT INFORMATION
  Report Type: Report from Study
  Country: NL (occurrence: NL)
  Receive Date: 20151111
  Receipt Date: 20151111
  Transmission Date: 20160304
  Serious: Yes (Hospitalization)
  Sender: FDA-Public Use
  Company Number: NL-BAXALTA-2015BLT002585

PATIENT
  Age: 5 Year
  Sex: Male
  Weight: 23 kg

DRUGS (5)
  1. PEGYLATED COAGULATION FACTOR VIII [Suspect]
     Active Substance: RURIOCTOCOG ALFA PEGOL
     Dosage: 489 IU IV ONCE AS TREATMENT
     Route: 042
     Dates: start: 20151103, end: 20151103
  2. PEGYLATED COAGULATION FACTOR VIII [Suspect]
     Active Substance: RURIOCTOCOG ALFA PEGOL
     Dosage: 1467 IU- LAST ADMINISTRATION PRIOR TO EVENT
     Route: 042
     Dates: start: 20151030, end: 20151030
  3. PEGYLATED COAGULATION FACTOR VIII [Suspect]
     Active Substance: RURIOCTOCOG ALFA PEGOL
     Dosage: 1000 IU ONCE, PRIOR TO HOSPITAL ADMISSION
     Route: 065
     Dates: start: 20151102, end: 20151102
  4. PEGYLATED COAGULATION FACTOR VIII [Suspect]
     Active Substance: RURIOCTOCOG ALFA PEGOL
     Indication: FACTOR VIII DEFICIENCY
     Dosage: 1467 IU- FIRST ADMINISTRATION PRIOR TO EVENT
     Route: 042
     Dates: start: 20150916, end: 20150916
  5. PEGYLATED COAGULATION FACTOR VIII [Suspect]
     Active Substance: RURIOCTOCOG ALFA PEGOL
     Dosage: 1000 (999) IU IV ONCE AS TREATMENT
     Route: 042
     Dates: start: 20151102, end: 20151102

REACTIONS (1)
  - Head injury [Recovered/Resolved]

NARRATIVE: CASE EVENT DATE: 20151102
